FAERS Safety Report 10088933 (Version 2)
Quarter: 2015Q1

REPORT INFORMATION
  Report Type: Report from Study
  Country: DE (occurrence: DE)
  Receive Date: 20140421
  Receipt Date: 20150129
  Transmission Date: 20150720
  Serious: No
  Sender: FDA-Public Use
  Company Number: PHHY2014DE048200

PATIENT
  Sex: Male

DRUGS (11)
  1. BISOPROLOL [Concomitant]
     Active Substance: BISOPROLOL
     Indication: PRODUCT USED FOR UNKNOWN INDICATION
     Dosage: 2.5 MG, UNK
     Dates: start: 2011
  2. AMN107 [Suspect]
     Active Substance: NILOTINIB
     Dosage: 400 MG
     Dates: start: 20140912
  3. AMN107 [Suspect]
     Active Substance: NILOTINIB
     Dosage: 400 MG
     Route: 048
     Dates: start: 20140110
  4. AMN107 [Suspect]
     Active Substance: NILOTINIB
     Indication: CHRONIC MYELOID LEUKAEMIA
     Dosage: 600 MG
     Route: 048
     Dates: start: 20130308
  5. AMN107 [Suspect]
     Active Substance: NILOTINIB
     Dosage: 600 MG
     Route: 048
     Dates: start: 20130409
  6. AMN107 [Suspect]
     Active Substance: NILOTINIB
     Dosage: 600 MG
     Route: 048
     Dates: start: 20130503
  7. AMN107 [Suspect]
     Active Substance: NILOTINIB
     Dosage: 400 MG
     Route: 048
     Dates: start: 20140404
  8. AMN107 [Suspect]
     Active Substance: NILOTINIB
     Dosage: 600 MG
     Route: 048
     Dates: start: 20130726
  9. AMN107 [Suspect]
     Active Substance: NILOTINIB
     Dosage: 600 MG
     Route: 048
     Dates: start: 20130920
  10. AMN107 [Suspect]
     Active Substance: NILOTINIB
     Dosage: UNK
  11. VESIKUR [Concomitant]
     Active Substance: SOLIFENACIN SUCCINATE
     Indication: PRODUCT USED FOR UNKNOWN INDICATION
     Dosage: UNK UKN, UNK
     Dates: start: 2011, end: 20130430

REACTIONS (5)
  - Dizziness [Not Recovered/Not Resolved]
  - Fatigue [Not Recovered/Not Resolved]
  - Disturbance in attention [Recovered/Resolved]
  - Hypoaesthesia [Not Recovered/Not Resolved]
  - Stress [Not Recovered/Not Resolved]

NARRATIVE: CASE EVENT DATE: 20130920
